FAERS Safety Report 10415610 (Version 6)
Quarter: 2014Q3

REPORT INFORMATION
  Report Type: Report from Study
  Country: US (occurrence: US)
  Receive Date: 20140828
  Receipt Date: 20140930
  Transmission Date: 20150326
  Serious: Yes (Other)
  Sender: FDA-Public Use
  Company Number: US-SA-2014SA066355

PATIENT
  Age: 64 Year
  Sex: Female

DRUGS (2)
  1. AUBAGIO [Suspect]
     Active Substance: TERIFLUNOMIDE
     Indication: MULTIPLE SCLEROSIS
     Route: 048
     Dates: start: 20140505, end: 20140526
  2. AUBAGIO [Suspect]
     Active Substance: TERIFLUNOMIDE
     Indication: MULTIPLE SCLEROSIS
     Route: 048
     Dates: start: 20140822, end: 20140915

REACTIONS (23)
  - Pyrexia [Unknown]
  - Asthenia [Not Recovered/Not Resolved]
  - Flank pain [Unknown]
  - Breast pain [Unknown]
  - Convulsion [Recovered/Resolved]
  - Pain [Not Recovered/Not Resolved]
  - Urine output decreased [Unknown]
  - Hypoaesthesia [Not Recovered/Not Resolved]
  - Abdominal pain upper [Unknown]
  - Dyspnoea [Not Recovered/Not Resolved]
  - Respiratory tract congestion [Not Recovered/Not Resolved]
  - Myalgia [Unknown]
  - Influenza like illness [Unknown]
  - Headache [Unknown]
  - Renal disorder [Unknown]
  - Back pain [Unknown]
  - Vomiting [Unknown]
  - Abdominal distension [Unknown]
  - Fatigue [Not Recovered/Not Resolved]
  - Musculoskeletal pain [Unknown]
  - Influenza [Not Recovered/Not Resolved]
  - Headache [Not Recovered/Not Resolved]
  - Malaise [Unknown]
